FAERS Safety Report 10977843 (Version 1)
Quarter: 2015Q2

REPORT INFORMATION
  Report Type: Report from Study
  Country: GB (occurrence: GB)
  Receive Date: 20150402
  Receipt Date: 20150402
  Transmission Date: 20150821
  Serious: Yes (Other)
  Sender: FDA-Public Use
  Company Number: GB-EISAI MEDICAL RESEARCH-E7389-03815-CLI-GB

PATIENT
  Age: 64 Year
  Sex: Male
  Weight: 81 kg

DRUGS (9)
  1. ERIBULIN [Suspect]
     Active Substance: ERIBULIN
     Indication: MESOTHELIOMA
     Route: 041
     Dates: start: 20130430, end: 20130507
  2. PREDNISOLONE. [Concomitant]
     Active Substance: PREDNISOLONE
     Indication: LETHARGY
     Route: 048
     Dates: start: 20130507
  3. ASPIRIN. [Concomitant]
     Active Substance: ASPIRIN
     Indication: MYOCARDIAL ISCHAEMIA
     Route: 048
     Dates: start: 2007
  4. PARACETAMOL [Concomitant]
     Active Substance: ACETAMINOPHEN
     Indication: PAIN
     Route: 048
     Dates: start: 2010
  5. OMEPRAZOLE. [Concomitant]
     Active Substance: OMEPRAZOLE
     Indication: DYSPEPSIA
     Route: 048
     Dates: start: 2009
  6. ERIBULIN [Suspect]
     Active Substance: ERIBULIN
     Dosage: UNKNOWN
     Route: 041
     Dates: start: 201305, end: 20130611
  7. CANDESARTAN [Concomitant]
     Active Substance: CANDESARTAN
     Indication: MYOCARDIAL ISCHAEMIA
     Route: 048
     Dates: start: 2007
  8. BISOPROLOL [Concomitant]
     Active Substance: BISOPROLOL
     Indication: MYOCARDIAL ISCHAEMIA
     Route: 048
     Dates: start: 2007
  9. SIMVASTATIN. [Concomitant]
     Active Substance: SIMVASTATIN
     Indication: MYOCARDIAL ISCHAEMIA
     Route: 048
     Dates: start: 2007

REACTIONS (5)
  - Toxicity to various agents [None]
  - Hypophosphataemia [Recovered/Resolved]
  - Aspartate aminotransferase increased [None]
  - Alanine aminotransferase increased [None]
  - Gamma-glutamyltransferase increased [None]

NARRATIVE: CASE EVENT DATE: 20130507
